FAERS Safety Report 6739301-0 (Version None)
Quarter: 2010Q2

REPORT INFORMATION
  Report Type: 
  Country: None (occurrence: None)
  Receive Date: 20100521
  Receipt Date: 20100512
  Transmission Date: 20101027
  Serious: Yes (Other)
  Sender: FDA-Public Use
  Company Number: 009005

PATIENT
  Sex: Female
  Weight: 63.2 kg

DRUGS (16)
  1. CERTOLIZUMAB PEGOL [Suspect]
     Indication: RHEUMATOID ARTHRITIS
     Dosage: (400 MG   1 X/2 WEEKS SUBCUTANEOUS),  (200 MG 1X/2 WEEKS SUBCUTANEOUS)
     Route: 058
     Dates: start: 20091130, end: 20091228
  2. CERTOLIZUMAB PEGOL [Suspect]
     Indication: RHEUMATOID ARTHRITIS
     Dosage: (400 MG   1 X/2 WEEKS SUBCUTANEOUS),  (200 MG 1X/2 WEEKS SUBCUTANEOUS)
     Route: 058
     Dates: start: 20100111, end: 20100308
  3. CERTOLIZUMAB PEGOL [Suspect]
     Indication: RHEUMATOID ARTHRITIS
     Dosage: (400 MG   1 X/2 WEEKS SUBCUTANEOUS),  (200 MG 1X/2 WEEKS SUBCUTANEOUS)
     Route: 058
     Dates: start: 20010402
  4. AVELOX [Suspect]
     Indication: EAR INFECTION
     Dosage: (400 MG ORAL)
     Route: 048
     Dates: start: 20100202, end: 20100206
  5. PREDNISONE  PERCOCET /00446701/ [Concomitant]
  6. VICODIN [Concomitant]
  7. ADVIL LIQUI-GELS [Concomitant]
  8. FOLIC ACID [Concomitant]
  9. CALCIUM WITH VITAMIN D /01233101/ [Concomitant]
  10. MULTIVITAMIN AND MINERAL [Concomitant]
  11. CLARITIN /00917501/ [Concomitant]
  12. TYLENOL SINUS /00908001/ [Concomitant]
  13. DIPHENYLPYRALINE HYDROCHLORIDE [Concomitant]
  14. AZITHROMYCIN [Concomitant]
  15. INFLUENZA VACCINE [Concomitant]
  16. HORMONAL CONTRACEPTIVES FOR SYSTEMIC USE [Concomitant]

REACTIONS (2)
  - DRUG HYPERSENSITIVITY [None]
  - PSORIASIS [None]
